APPROVED DRUG PRODUCT: CANDESARTAN CILEXETIL
Active Ingredient: CANDESARTAN CILEXETIL
Strength: 8MG
Dosage Form/Route: TABLET;ORAL
Application: A203813 | Product #002 | TE Code: AB
Applicant: MACLEODS PHARMACEUTICALS LTD
Approved: Dec 5, 2016 | RLD: No | RS: No | Type: RX